FAERS Safety Report 15340538 (Version 3)
Quarter: 2018Q4

REPORT INFORMATION
  Report Type: Spontaneous
  Country: US (occurrence: US)
  Receive Date: 20180831
  Receipt Date: 20181024
  Transmission Date: 20190204
  Serious: No
  Sender: FDA-Public Use
  Company Number: US-PFIZER INC-2018350257

PATIENT
  Age: 55 Year
  Sex: Male
  Weight: 77.11 kg

DRUGS (5)
  1. OXYCODONE [Concomitant]
     Active Substance: OXYCODONE
     Dosage: 20 MG, 3X/DAY
     Route: 048
  2. TRAZODONE [Concomitant]
     Active Substance: TRAZODONE HYDROCHLORIDE
     Indication: SLEEP DISORDER
     Dosage: UNK
  3. DIAZEPAM. [Concomitant]
     Active Substance: DIAZEPAM
     Indication: ANXIETY
     Dosage: 10MG TABLET, 1 1/2 TABLETS A DAY BY MOUTH
     Route: 048
  4. CHANTIX [Suspect]
     Active Substance: VARENICLINE TARTRATE
     Indication: SMOKING CESSATION THERAPY
     Dosage: SMALLER DOSE, TWICE A DAY
     Route: 048
     Dates: start: 201801
  5. CHANTIX [Suspect]
     Active Substance: VARENICLINE TARTRATE
     Dosage: WHOLE AMOUNT OF THE DOSAGE, TWICE A DAY
     Route: 048

REACTIONS (4)
  - Sinusitis [Not Recovered/Not Resolved]
  - Headache [Not Recovered/Not Resolved]
  - Lung disorder [Not Recovered/Not Resolved]
  - Pleurisy [Not Recovered/Not Resolved]

NARRATIVE: CASE EVENT DATE: 2018
